FAERS Safety Report 10846503 (Version 2)
Quarter: 2015Q2

REPORT INFORMATION
  Report Type: Spontaneous
  Country: FR (occurrence: FR)
  Receive Date: 20150220
  Receipt Date: 20150413
  Transmission Date: 20150821
  Serious: Yes (Hospitalization, Other)
  Sender: FDA-Public Use
  Company Number: FR-ELI_LILLY_AND_COMPANY-FR201502005032

PATIENT
  Age: 70 Year
  Sex: Male
  Weight: 68 kg

DRUGS (6)
  1. AVASTIN [Concomitant]
     Active Substance: BEVACIZUMAB
     Indication: LUNG ADENOCARCINOMA
     Dosage: 7.5 MG/KG, CYCLICAL
     Route: 065
     Dates: start: 20131106, end: 20150126
  2. ALIMTA [Suspect]
     Active Substance: PEMETREXED DISODIUM
     Indication: LUNG ADENOCARCINOMA
     Dosage: 500 MG/M2, CYCLICAL, EVERY 21 DAYS
     Route: 042
     Dates: start: 20131106, end: 20150126
  3. VITAMIN B12 [Concomitant]
     Active Substance: CYANOCOBALAMIN
     Indication: PREMEDICATION
  4. CISPLATINE [Concomitant]
     Active Substance: CISPLATIN
     Indication: LUNG ADENOCARCINOMA
     Dosage: 100 MG/M2, CYCLICAL
     Route: 065
     Dates: start: 20131106, end: 20140206
  5. FOLIC ACID. [Concomitant]
     Active Substance: FOLIC ACID
     Indication: PREMEDICATION
  6. DEXAMETHASONE. [Concomitant]
     Active Substance: DEXAMETHASONE
     Indication: PREMEDICATION

REACTIONS (5)
  - Peripheral sensory neuropathy [Not Recovered/Not Resolved]
  - Neutropenia [Unknown]
  - Off label use [Unknown]
  - Pleural effusion [Unknown]
  - Renal failure [Unknown]

NARRATIVE: CASE EVENT DATE: 201501
